FAERS Safety Report 8153112-3 (Version None)
Quarter: 2012Q1

REPORT INFORMATION
  Report Type: 
  Country: None (occurrence: None)
  Receive Date: 20120221
  Receipt Date: 20120214
  Transmission Date: 20120608
  Serious: Yes (Disabling)
  Sender: FDA-Public Use
  Company Number: CA-B.I. PHARMACEUTICALS,INC./RIDGEFIELD-2012-CN-00309CN

PATIENT
  Age: 81 Year
  Sex: Male

DRUGS (6)
  1. PRADAXA [Suspect]
     Dosage: 220 MG
     Route: 048
  2. ATENOLOL BP [Concomitant]
     Route: 065
  3. DIOVAN [Concomitant]
     Route: 065
  4. LASIX [Concomitant]
     Route: 065
  5. AVODART [Concomitant]
     Route: 065
  6. FLOMAX [Concomitant]
     Route: 065

REACTIONS (5)
  - CONJUNCTIVAL HAEMORRHAGE [None]
  - EPISTAXIS [None]
  - PERIORBITAL OEDEMA [None]
  - SKIN HAEMORRHAGE [None]
  - CONTUSION [None]
